FAERS Safety Report 6626998-9 (Version None)
Quarter: 2010Q1

REPORT INFORMATION
  Report Type: 
  Country: None (occurrence: None)
  Receive Date: 20100308
  Receipt Date: 20100212
  Transmission Date: 20100710
  Serious: Yes (Other)
  Sender: FDA-Public Use
  Company Number: AUR-APL-2010-00210

PATIENT
  Age: 51 Year
  Sex: Male
  Weight: 117.028 kg

DRUGS (7)
  1. METOPROLOL [Suspect]
     Indication: HYPERTENSION
     Dates: end: 20100101
  2. CARVEDILOL [Suspect]
     Indication: HYPERTENSION
  3. LISINOPRIL AND HYDROCHLOROTHIAZIDE [Suspect]
     Indication: HYPERTENSION
  4. SIMVASTATIN [Suspect]
  5. AMLODIPINE [Suspect]
     Indication: HYPERTENSION
     Dosage: 5-10MG
  6. CLONIDINE [Suspect]
     Indication: HYPERTENSION
  7. HYDRALAZINE HCL [Suspect]
     Indication: HYPERTENSION

REACTIONS (5)
  - DRUG INEFFECTIVE [None]
  - HEADACHE [None]
  - LOSS OF CONSCIOUSNESS [None]
  - MALIGNANT HYPERTENSION [None]
  - SOMNOLENCE [None]
